FAERS Safety Report 9227063 (Version 1)
Quarter: 2013Q2

REPORT INFORMATION
  Report Type: Spontaneous
  Country: US (occurrence: None)
  Receive Date: 20130410
  Receipt Date: 20130410
  Transmission Date: 20140414
  Serious: Yes (Hospitalization)
  Sender: FDA-Public Use
  Company Number: DSU-2013-02729

PATIENT
  Sex: Male

DRUGS (2)
  1. WELCHOL [Suspect]
     Indication: PRODUCT USED FOR UNKNOWN INDICATION
     Route: 048
  2. METOPROLOL(METOPR-?UNKNOWN - UNKNOWN OLOL) (METOPROLOL) [Concomitant]

REACTIONS (1)
  - Pyelonephritis [None]
